FAERS Safety Report 6646958-1 (Version None)
Quarter: 2010Q1

REPORT INFORMATION
  Report Type: 
  Country: None (occurrence: None)
  Receive Date: 20100323
  Receipt Date: 20100311
  Transmission Date: 20100710
  Serious: Yes (Other)
  Sender: FDA-Public Use
  Company Number: BE-PFIZER INC-2010031917

PATIENT
  Sex: Female

DRUGS (1)
  1. SOSTILAR [Suspect]
     Indication: HYPERPROLACTINAEMIA
     Dosage: UNK
     Route: 048
     Dates: start: 20090101

REACTIONS (1)
  - VENOUS THROMBOSIS [None]
